FAERS Safety Report 6869085-7 (Version None)
Quarter: 2010Q3

REPORT INFORMATION
  Report Type: 
  Country: None (occurrence: None)
  Receive Date: 20100722
  Receipt Date: 20090322
  Transmission Date: 20110219
  Serious: Yes (Other)
  Sender: FDA-Public Use
  Company Number: US-PFIZER INC-2008051948

PATIENT
  Sex: Female
  Weight: 77.098 kg

DRUGS (11)
  1. CHANTIX [Suspect]
     Indication: SMOKING CESSATION THERAPY
     Dosage: 0.5 MG, 2X/DAY
     Route: 048
     Dates: start: 20080401, end: 20080601
  2. INSULIN [Concomitant]
     Indication: DIABETES MELLITUS
  3. XANAX [Concomitant]
  4. AMBIEN [Concomitant]
  5. ATARAX [Concomitant]
  6. NEURONTIN [Concomitant]
  7. VALSARTAN [Concomitant]
     Indication: HYPERTENSION
  8. DARVOCET [Concomitant]
     Indication: RESTLESS LEGS SYNDROME
  9. VITAMIN E [Concomitant]
  10. SINEMET [Concomitant]
     Indication: RESTLESS LEGS SYNDROME
  11. ADVAIR DISKUS 100/50 [Concomitant]

REACTIONS (9)
  - ABNORMAL DREAMS [None]
  - BLOOD GLUCOSE INCREASED [None]
  - INSOMNIA [None]
  - LOCAL SWELLING [None]
  - MIDDLE INSOMNIA [None]
  - NERVOUSNESS [None]
  - SOMNOLENCE [None]
  - STRESS [None]
  - WEIGHT DECREASED [None]
